FAERS Safety Report 8886487 (Version 6)
Quarter: 2013Q2

REPORT INFORMATION
  Report Type: Spontaneous
  Country: US (occurrence: US)
  Receive Date: 20121105
  Receipt Date: 20130411
  Transmission Date: 20140414
  Serious: Yes (Hospitalization, Disabling, Other)
  Sender: FDA-Public Use
  Company Number: US-009507513-1202USA01975

PATIENT
  Sex: Female

DRUGS (10)
  1. FOSAMAX [Suspect]
     Indication: OSTEOPOROSIS
     Dosage: 70 MG, UNK
     Route: 048
     Dates: start: 20020923, end: 20070104
  2. FOSAMAX PLUS D [Suspect]
     Indication: OSTEOPOROSIS
     Dosage: 70 MG/ 2800 IU
     Route: 048
     Dates: start: 20070104, end: 20090228
  3. FOSAMAX PLUS D [Suspect]
     Dosage: 70 MG/ 5600 IU
     Route: 048
  4. OMEGA-3 MARINE TRIGLYCERIDES [Concomitant]
     Dosage: UNK
     Dates: start: 2000
  5. CALCIUM CITRATE (+) VITAMIN D (UNSPECIFIED) [Concomitant]
     Dosage: UNK
     Dates: start: 2000
  6. ESTER-C [Concomitant]
  7. VITAMIN D (UNSPECIFIED) [Concomitant]
     Dosage: UNK
     Dates: start: 2000
  8. CENTRUM SILVER [Concomitant]
     Dosage: UNK
     Dates: start: 2000
  9. AVALIDE [Concomitant]
     Indication: HYPERTENSION
  10. NEXIUM [Concomitant]
     Indication: GASTROOESOPHAGEAL REFLUX DISEASE

REACTIONS (9)
  - Femur fracture [Recovered/Resolved]
  - Femur fracture [Recovered/Resolved]
  - Peroneal nerve palsy [Recovering/Resolving]
  - Intramedullary rod insertion [Unknown]
  - Intramedullary rod insertion [Unknown]
  - Tooth extraction [Unknown]
  - Palpitations [Unknown]
  - Spinal osteoarthritis [Unknown]
  - Osteopenia [Unknown]
